FAERS Safety Report 10167679 (Version 1)
Quarter: 2014Q2

REPORT INFORMATION
  Report Type: Spontaneous
  Country: US (occurrence: US)
  Receive Date: 20140512
  Receipt Date: 20140512
  Transmission Date: 20141212
  Serious: Yes (Other)
  Sender: FDA-Public Use
  Company Number: US-TAKEDA-2014TUS003740

PATIENT
  Sex: 0

DRUGS (3)
  1. BRINTELLIX [Suspect]
     Indication: MAJOR DEPRESSION
     Dosage: 10 MG, QD
     Route: 048
  2. BRINTELLIX [Suspect]
     Dosage: 20 MG, QD
     Route: 048
  3. BRINTELLIX [Suspect]
     Dosage: 10 MG, QD
     Route: 048

REACTIONS (1)
  - Suicidal ideation [Recovered/Resolved]
